FAERS Safety Report 7060028-2 (Version None)
Quarter: 2010Q4

REPORT INFORMATION
  Report Type: 
  Country: None (occurrence: None)
  Receive Date: 20101025
  Receipt Date: 20101015
  Transmission Date: 20110411
  Serious: Yes (Death)
  Sender: FDA-Public Use
  Company Number: GR-JNJFOC-20100807215

PATIENT
  Age: 72 Year
  Sex: Male
  Weight: 72 kg

DRUGS (20)
  1. REMICADE [Suspect]
     Indication: RHEUMATOID ARTHRITIS
     Route: 042
  2. METHOTREXATE [Suspect]
     Indication: RHEUMATOID ARTHRITIS
  3. ARAVA [Concomitant]
     Indication: RHEUMATOID ARTHRITIS
  4. ZOCOR [Concomitant]
  5. ALFACALCIDOL [Concomitant]
  6. SYMBICORT [Concomitant]
  7. CALCIUM CARBONATE [Concomitant]
  8. TEVANATE [Concomitant]
  9. SITAXENTAN [Concomitant]
     Indication: PULMONARY HYPERTENSION
  10. BISPHOSPHONATES [Concomitant]
  11. PLAQUENIL [Concomitant]
  12. CALCIUM [Concomitant]
  13. VITAMIN D [Concomitant]
  14. SALOSPIR-A [Concomitant]
  15. DILTIAZEM HCL [Concomitant]
  16. PANCORAN [Concomitant]
  17. FLUOXETINE HYDROCHLORIDE [Concomitant]
  18. OXYGEN [Concomitant]
  19. MEDROL [Concomitant]
  20. INHALERS NOS [Concomitant]

REACTIONS (3)
  - PULMONARY FIBROSIS [None]
  - PULMONARY HYPERTENSION [None]
  - RESPIRATORY FAILURE [None]
